FAERS Safety Report 5746319-3 (Version None)
Quarter: 2008Q2

REPORT INFORMATION
  Report Type: 
  Country: None (occurrence: None)
  Receive Date: 20080522
  Receipt Date: 20080508
  Transmission Date: 20081010
  Serious: Yes (Disabling)
  Sender: FDA-Public Use
  Company Number: NO-GENENTECH-260703

PATIENT
  Sex: Male

DRUGS (1)
  1. AVASTIN [Suspect]
     Indication: MACULAR OEDEMA
     Dosage: 0.05 ML, UNK
     Route: 031
     Dates: start: 20070620, end: 20070620

REACTIONS (1)
  - RETINAL ARTERY OCCLUSION [None]
